FAERS Safety Report 4860175-7 (Version None)
Quarter: 2005Q4

REPORT INFORMATION
  Report Type: 
  Country: None (occurrence: None)
  Receive Date: 20051215
  Receipt Date: 20051207
  Transmission Date: 20060501
  Serious: No
  Sender: FDA-Public Use
  Company Number: TPA2005A01610

PATIENT
  Age: 71 Year
  Sex: Female
  Weight: 72.5755 kg

DRUGS (4)
  1. ACTOS [Suspect]
     Indication: DIABETES MELLITUS
     Dosage: PER ORAL
     Route: 048
  2. HUMULIN N (INSULIN HUMAN INJECTION, ISOPHANE) (5 IU (INTERNATIONAL UNI [Concomitant]
  3. HUMULIN L (INSULIN ZINC SUSPENSION) [Concomitant]
  4. HUMALOG [Concomitant]

REACTIONS (6)
  - BONE PAIN [None]
  - BURNING SENSATION [None]
  - DRUG HYPERSENSITIVITY [None]
  - OEDEMA PERIPHERAL [None]
  - SCAB [None]
  - SKIN INFECTION [None]
